FAERS Safety Report 20414970 (Version 4)
Quarter: 2022Q2

REPORT INFORMATION
  Report Type: Spontaneous
  Country: IT (occurrence: IT)
  Receive Date: 20220202
  Receipt Date: 20220630
  Transmission Date: 20220720
  Serious: Yes (Other)
  Sender: FDA-Public Use
  Company Number: IT-CELLTRION INC.-2022IT000728

PATIENT

DRUGS (11)
  1. RITUXIMAB [Suspect]
     Active Substance: RITUXIMAB
     Indication: Non-Hodgkin^s lymphoma
     Dosage: UNK
  2. RITUXIMAB [Suspect]
     Active Substance: RITUXIMAB
     Indication: Testis cancer
     Dosage: AS PART OF R-CHOP REGIMEN
     Route: 065
  3. PREDNISONE [Suspect]
     Active Substance: PREDNISONE
     Indication: Non-Hodgkin^s lymphoma
     Dosage: 40 MG/M2 FOR 5 DAYS AT EACH CYCLE
  4. PREDNISONE [Suspect]
     Active Substance: PREDNISONE
     Indication: Testis cancer
     Dosage: 40 MG/M2, AS PART OF R-CHOP REGIMEN; FOR 5 DAYS AT EACH CYCLE
     Route: 065
  5. DOXORUBICIN HYDROCHLORIDE [Concomitant]
     Active Substance: DOXORUBICIN HYDROCHLORIDE
     Indication: Non-Hodgkin^s lymphoma
     Dosage: UNK
  6. DOXORUBICIN HYDROCHLORIDE [Concomitant]
     Active Substance: DOXORUBICIN HYDROCHLORIDE
     Indication: Testis cancer
     Dosage: AS PART OF R-CHOP REGIMEN
     Route: 065
  7. VINCRISTINE [Concomitant]
     Active Substance: VINCRISTINE
     Indication: Non-Hodgkin^s lymphoma
     Dosage: UNK
  8. VINCRISTINE [Concomitant]
     Active Substance: VINCRISTINE
     Indication: Testis cancer
     Dosage: AS PART OF R-CHOP REGIMENUNK
     Route: 065
  9. CYCLOPHOSPHAMIDE [Concomitant]
     Active Substance: CYCLOPHOSPHAMIDE
     Indication: Non-Hodgkin^s lymphoma
     Dosage: UNK
  10. CYCLOPHOSPHAMIDE [Concomitant]
     Active Substance: CYCLOPHOSPHAMIDE
     Indication: Testis cancer
     Dosage: AS PART OF R-CHOP REGIMEN
     Route: 065
  11. PREDNISOLONE [Concomitant]
     Active Substance: PREDNISOLONE
     Indication: Non-Hodgkin^s lymphoma
     Dosage: 40 MG/M2, CYCLIC, 5 DAYS

REACTIONS (2)
  - Disease recurrence [Unknown]
  - Kaposi^s sarcoma [Recovered/Resolved]
